FAERS Safety Report 24578554 (Version 1)
Quarter: 2024Q4

REPORT INFORMATION
  Report Type: Report from Study
  Country: CN (occurrence: CN)
  Receive Date: 20241105
  Receipt Date: 20241105
  Transmission Date: 20250115
  Serious: Yes (Other)
  Sender: ROCHE
  Company Number: CN-ROCHE-10000054145

PATIENT
  Age: 61 Year
  Sex: Female

DRUGS (1)
  1. GLOFITAMAB [Suspect]
     Active Substance: GLOFITAMAB
     Indication: Diffuse large B-cell lymphoma
     Route: 042
     Dates: start: 20240423

REACTIONS (7)
  - Platelet count decreased [Unknown]
  - Hyperpyrexia [Unknown]
  - Dyspnoea [Unknown]
  - Productive cough [Unknown]
  - Gastrointestinal disorder [Unknown]
  - Feeding disorder [Unknown]
  - Pain [Unknown]
